FAERS Safety Report 9325507 (Version 1)
Quarter: 2013Q2

REPORT INFORMATION
  Report Type: Report from Study
  Country: US (occurrence: None)
  Receive Date: 20130528
  Receipt Date: 20130528
  Transmission Date: 20140414
  Serious: Yes (Life-Threatening, Hospitalization)
  Sender: FDA-Public Use
  Company Number: AG-2012-0663

PATIENT
  Age: 12 Year
  Sex: Female

DRUGS (10)
  1. MERCAPTOPURINE [Suspect]
     Dosage: (60 MG/M2,CYCLICAL),ORAL
     Route: 048
  2. TIOGUANINE [Suspect]
     Dosage: (60 MG/M2,CYCLICAL),ORAL
     Route: 048
  3. NELARABINE [Suspect]
     Dosage: (650 MG/M2,CYCLICAL),INTRAVENOUS (NOT OTHERWISE SPECIFIED)
     Route: 042
     Dates: start: 20110927
  4. VINCRISTINE (VINCRISTINE) (UNKNOWN) [Suspect]
     Dosage: (1.5 MG/M2,CYCLICAL),INTRAVENOUS (NOT OTHERWI SPECIFIED)
     Route: 042
     Dates: start: 20110817
  5. DEXAMETHASONE [Suspect]
     Dosage: (5 MG/M2,CYCLICAL),ORAL
     Route: 048
     Dates: start: 20110817
  6. DOXORUBICIN [Suspect]
     Dosage: (25 MG/M2,CYCLICAL),INTRAVENOUS (NOT OTHERWISE SPECIFIED)
     Route: 042
     Dates: start: 20110817
  7. PEGASPARGASE [Suspect]
     Dosage: (2500 IU (INTERNATIONAL UNIT),CYCLICAL),INTRAMUSCULAR??
     Route: 030
  8. METHOTREXATE (METHOTREXATE) (UNKNOWN) [Suspect]
     Route: 037
     Dates: start: 20110817
  9. CYCLOPHOSPHAMIDE [Suspect]
     Dosage: (1000 MG/M2,CYCLICAL), INTRAVENOUS (NOT OTHERWISE SPECIFIED)
     Route: 042
  10. CYTARABINE [Suspect]
     Dosage: (75 MG/M2,CYCLICAL),INTRAVENOUS (NOT OTHERWISE SPECIFIED)
     Route: 042

REACTIONS (2)
  - Sepsis [None]
  - Pneumonia klebsiella [None]
